FAERS Safety Report 14335234 (Version 1)
Quarter: 2017Q4

REPORT INFORMATION
  Report Type: Spontaneous
  Country: US (occurrence: US)
  Receive Date: 20171229
  Receipt Date: 20171229
  Transmission Date: 20180321
  Serious: No
  Sender: FDA-Public Use
  Company Number: US-BIOGEN-2017BI00470078

PATIENT
  Sex: Female

DRUGS (1)
  1. TECFIDERA [Suspect]
     Active Substance: DIMETHYL FUMARATE
     Indication: MULTIPLE SCLEROSIS
     Route: 048
     Dates: start: 20170720

REACTIONS (7)
  - Limb discomfort [Unknown]
  - Pruritus [Unknown]
  - Tremor [Unknown]
  - Muscle spasticity [Unknown]
  - Drug ineffective [Unknown]
  - Flushing [Unknown]
  - Gait disturbance [Unknown]
